FAERS Safety Report 5371259-1 (Version None)
Quarter: 2007Q2

REPORT INFORMATION
  Report Type: 
  Country: None (occurrence: None)
  Receive Date: 20070615
  Receipt Date: 20070409
  Transmission Date: 20071010
  Serious: Yes (Other)
  Sender: FDA-Public Use
  Company Number: 200712544US

PATIENT
  Age: 72 Year
  Sex: Male

DRUGS (5)
  1. LANTUS [Suspect]
     Indication: DIABETES MELLITUS
     Dosage: 15 U QD;
     Dates: start: 20040101
  2. LANTUS [Suspect]
     Indication: DIABETES MELLITUS
     Dosage: 4 U QD;
     Dates: start: 20040101, end: 20040101
  3. LANTUS [Suspect]
     Indication: DIABETES MELLITUS
     Dosage: 38 U QD;
     Dates: start: 19990101, end: 20040101
  4. HUMALOG [Suspect]
     Indication: DIABETES MELLITUS
  5. HUMALOG [Suspect]

REACTIONS (4)
  - CONFUSIONAL STATE [None]
  - HYPERGLYCAEMIA [None]
  - HYPOGLYCAEMIC UNCONSCIOUSNESS [None]
  - LOSS OF CONSCIOUSNESS [None]
